FAERS Safety Report 5797226-1 (Version None)
Quarter: 2008Q3

REPORT INFORMATION
  Report Type: 
  Country: None (occurrence: None)
  Receive Date: 20080701
  Receipt Date: 20080616
  Transmission Date: 20090109
  Serious: Yes (Hospitalization)
  Sender: FDA-Public Use
  Company Number: FR-GENENTECH-263269

PATIENT
  Sex: Female

DRUGS (3)
  1. BEVACIZUMAB [Suspect]
     Indication: BREAST CANCER METASTATIC
     Dosage: 1110 MG, Q3W
     Route: 042
     Dates: start: 20070402
  2. DURAGESIC-100 [Concomitant]
  3. COAPROVEL [Concomitant]

REACTIONS (1)
  - INTESTINAL OBSTRUCTION [None]
